FAERS Safety Report 15789209 (Version 1)
Quarter: 2019Q1

REPORT INFORMATION
  Report Type: Spontaneous
  Country: US (occurrence: US)
  Receive Date: 20190103
  Receipt Date: 20190103
  Transmission Date: 20190417
  Serious: Yes (Disabling)
  Sender: FDA-Public Use
  Company Number: None

PATIENT
  Age: 33 Year
  Sex: Female
  Weight: 58.5 kg

DRUGS (3)
  1. IMITREX [Concomitant]
     Active Substance: SUMATRIPTAN SUCCINATE
  2. PRENATAL VITAMIN [Concomitant]
     Active Substance: VITAMINS
  3. MIRENA [Suspect]
     Active Substance: LEVONORGESTREL
     Indication: CONTRACEPTION
     Route: 067
     Dates: start: 20150214, end: 20180515

REACTIONS (4)
  - Human chorionic gonadotropin decreased [None]
  - Pregnancy [None]
  - Abortion spontaneous [None]
  - Vaginal haemorrhage [None]

NARRATIVE: CASE EVENT DATE: 20181216
